FAERS Safety Report 4303852-9 (Version None)
Quarter: 2004Q1

REPORT INFORMATION
  Report Type: 
  Country: None (occurrence: None)
  Receive Date: 20040225
  Receipt Date: 20040115
  Transmission Date: 20041129
  Serious: Yes (Hospitalization, Other)
  Sender: FDA-Public Use
  Company Number: US-GLAXOSMITHKLINE-A0493457A

PATIENT
  Age: 77 Year
  Sex: Female
  Weight: 60.9 kg

DRUGS (15)
  1. CARVEDILOL [Suspect]
     Dosage: 25MG TWICE PER DAY
     Route: 048
     Dates: start: 20031119, end: 20040114
  2. PLAVIX [Suspect]
     Dosage: 75MG PER DAY
     Dates: start: 20030601, end: 20040112
  3. LASIX [Concomitant]
     Dosage: 60MG PER DAY
     Route: 048
  4. WARFARIN SODIUM [Concomitant]
  5. COZAAR [Concomitant]
     Dosage: 50MG TWICE PER DAY
  6. ASPIRIN [Concomitant]
     Dosage: 81MG THREE TIMES PER WEEK
     Dates: end: 20040112
  7. SYNTHROID [Concomitant]
  8. K-DUR 10 [Concomitant]
     Dosage: 20MEQ TWICE PER DAY
  9. ISORDIL [Concomitant]
     Dosage: 20MG THREE TIMES PER DAY
  10. FOLIC ACID [Concomitant]
     Dosage: 400MCG PER DAY
  11. B12 [Concomitant]
     Dosage: 500MCG PER DAY
  12. ZOCOR [Concomitant]
     Dosage: 20MG AT NIGHT
  13. AMIODARONE [Concomitant]
     Dosage: 200MG PER DAY
  14. NIACIN [Concomitant]
     Dosage: 500MG PER DAY
  15. ULTRAM [Concomitant]
     Dosage: 1TAB PER DAY

REACTIONS (7)
  - ASTHENIA [None]
  - CONTUSION [None]
  - DRUG INTERACTION [None]
  - INTERNATIONAL NORMALISED RATIO INCREASED [None]
  - PAIN IN EXTREMITY [None]
  - PLATELET COUNT DECREASED [None]
  - RECTAL HAEMORRHAGE [None]
